FAERS Safety Report 18338713 (Version 1)
Quarter: 2020Q4

REPORT INFORMATION
  Report Type: Spontaneous
  Country: US (occurrence: US)
  Receive Date: 20201002
  Receipt Date: 20201002
  Transmission Date: 20210113
  Serious: No
  Sender: FDA-Public Use
  Company Number: US-SAREPTA THERAPEUTICS INC.-SRP2020-000844

PATIENT
  Age: 22 Year
  Sex: Male

DRUGS (1)
  1. EXONDYS 51 [Suspect]
     Active Substance: ETEPLIRSEN
     Indication: PRODUCT USED FOR UNKNOWN INDICATION
     Dosage: 1900 MG, WEEKLY
     Route: 042

REACTIONS (3)
  - Ingrown hair [Unknown]
  - Pyrexia [Unknown]
  - Localised infection [Unknown]

NARRATIVE: CASE EVENT DATE: 20200730
